FAERS Safety Report 4645068-2 (Version None)
Quarter: 2005Q2

REPORT INFORMATION
  Report Type: 
  Country: None (occurrence: None)
  Receive Date: 20050422
  Receipt Date: 20050413
  Transmission Date: 20051028
  Serious: Yes (Hospitalization)
  Sender: FDA-Public Use
  Company Number: MEDI-0003174

PATIENT
  Age: 4 Month
  Sex: Male
  Weight: 4.69 kg

DRUGS (7)
  1. SYNAGIS [Suspect]
     Dosage: SEE IMAGE
     Route: 030
     Dates: start: 20041201, end: 20050217
  2. SYNAGIS [Suspect]
     Dosage: SEE IMAGE
     Route: 030
     Dates: start: 20050317, end: 20050317
  3. SYNAGIS [Suspect]
     Dosage: SEE IMAGE
     Route: 030
     Dates: start: 20041201
  4. SYNAGIS [Suspect]
     Dosage: SEE IMAGE
     Route: 030
     Dates: start: 20050119
  5. ALBLUTEROL (SALBUTAMOL) [Concomitant]
  6. PULMICORT [Concomitant]
  7. PEPCID (FAMOTIDEINE) [Concomitant]

REACTIONS (5)
  - ANOREXIA [None]
  - DYSPNOEA [None]
  - NASOPHARYNGITIS [None]
  - RESPIRATORY DISTRESS [None]
  - WEIGHT DECREASED [None]
